FAERS Safety Report 7355942-4 (Version None)
Quarter: 2011Q1

REPORT INFORMATION
  Report Type: 
  Country: None (occurrence: None)
  Receive Date: 20110310
  Receipt Date: 20110310
  Transmission Date: 20110831
  Serious: Yes (Death)
  Sender: FDA-Public Use
  Company Number: None

PATIENT
  Age: 68 Year
  Sex: Male

DRUGS (2)
  1. REVLIMID [Suspect]
     Indication: MULTIPLE MYELOMA
     Dosage: 10MG QD ORAL
     Route: 048
     Dates: start: 20080301, end: 20091001
  2. ZOLOFT [Concomitant]

REACTIONS (3)
  - NO THERAPEUTIC RESPONSE [None]
  - THERAPY CESSATION [None]
  - THERAPY REGIMEN CHANGED [None]
